FAERS Safety Report 5675469-5 (Version None)
Quarter: 2008Q1

REPORT INFORMATION
  Report Type: 
  Country: None (occurrence: None)
  Receive Date: 20080321
  Receipt Date: 20080205
  Transmission Date: 20080703
  Serious: No
  Sender: FDA-Public Use
  Company Number: A0653528A

PATIENT
  Age: 48 Year
  Sex: Female

DRUGS (2)
  1. AVANDARYL [Suspect]
     Dosage: 1TAB TWICE PER DAY
     Route: 048
     Dates: end: 20070529
  2. VITAMINS [Concomitant]

REACTIONS (2)
  - SWELLING FACE [None]
  - URINE OUTPUT DECREASED [None]
